FAERS Safety Report 13551649 (Version 3)
Quarter: 2018Q1

REPORT INFORMATION
  Report Type: Report from Study
  Country: CA (occurrence: CA)
  Receive Date: 20170516
  Receipt Date: 20180202
  Transmission Date: 20180508
  Serious: Yes (Other)
  Sender: FDA-Public Use
  Company Number: CA-ALLERGAN-1719890US

PATIENT
  Age: 13 Year
  Sex: Female

DRUGS (13)
  1. BERINERT [Suspect]
     Active Substance: HUMAN C1-ESTERASE INHIBITOR
     Indication: PROPHYLAXIS
     Dosage: UNK
     Route: 058
  2. BERINERT [Suspect]
     Active Substance: HUMAN C1-ESTERASE INHIBITOR
     Dosage: 1500 IU, THREE TIMES A WEEK
     Route: 058
     Dates: start: 20161107
  3. BERINERT [Suspect]
     Active Substance: HUMAN C1-ESTERASE INHIBITOR
     Dosage: 1500 IU, THREE TIMES A WEEK
     Route: 042
     Dates: start: 201605, end: 201611
  4. BERINERT [Suspect]
     Active Substance: HUMAN C1-ESTERASE INHIBITOR
     Dosage: 3000 IU, UNK
     Route: 042
     Dates: start: 20161023, end: 20161023
  5. BERINERT [Suspect]
     Active Substance: HUMAN C1-ESTERASE INHIBITOR
     Dosage: 1500 IU, UNK
     Route: 058
     Dates: start: 20161007, end: 20161007
  6. BERINERT [Suspect]
     Active Substance: HUMAN C1-ESTERASE INHIBITOR
     Indication: HEREDITARY ANGIOEDEMA
     Dosage: UNK
     Route: 042
     Dates: start: 20170208
  7. BERINERT [Suspect]
     Active Substance: HUMAN C1-ESTERASE INHIBITOR
     Dosage: 3000 IU (1500 ITX2)
     Route: 042
     Dates: start: 20161214, end: 20161214
  8. BERINERT [Suspect]
     Active Substance: HUMAN C1-ESTERASE INHIBITOR
     Dosage: 1500 IU, UNK
     Route: 042
     Dates: start: 20161022, end: 20161022
  9. BERINERT [Suspect]
     Active Substance: HUMAN C1-ESTERASE INHIBITOR
     Dosage: 1500 IU, UNK
     Route: 058
     Dates: start: 20170123
  10. BERINERT [Suspect]
     Active Substance: HUMAN C1-ESTERASE INHIBITOR
     Dosage: UNK
     Route: 042
     Dates: start: 20161022
  11. FIRAZYR [Concomitant]
     Active Substance: ICATIBANT ACETATE
     Indication: PRODUCT USED FOR UNKNOWN INDICATION
     Route: 058
  12. ESCITALOPRAM OXALATE UNK [Suspect]
     Active Substance: ESCITALOPRAM OXALATE
     Indication: ANXIETY
     Route: 065
  13. BERINERT [Suspect]
     Active Substance: HUMAN C1-ESTERASE INHIBITOR
     Dosage: 3000 IU, UNK
     Route: 042
     Dates: start: 20161023

REACTIONS (10)
  - Selective mutism [Not Recovered/Not Resolved]
  - Infusion site pain [Not Recovered/Not Resolved]
  - Off label use [Unknown]
  - Vascular access site occlusion [Not Recovered/Not Resolved]
  - Anxiety [Not Recovered/Not Resolved]
  - Fear of injection [Unknown]
  - Hereditary angioedema [Not Recovered/Not Resolved]
  - Drug ineffective [Unknown]
  - Pharyngitis streptococcal [Not Recovered/Not Resolved]
  - Vaginal infection [Not Recovered/Not Resolved]

NARRATIVE: CASE EVENT DATE: 2016
